FAERS Safety Report 4632443-5 (Version None)
Quarter: 2005Q2

REPORT INFORMATION
  Report Type: 
  Country: None (occurrence: None)
  Receive Date: 20050401
  Receipt Date: 20050128
  Transmission Date: 20051028
  Serious: Yes (Disabling)
  Sender: FDA-Public Use
  Company Number: 05P-163-0288562-00

PATIENT
  Age: 57 Year
  Sex: Female
  Weight: 67.1324 kg

DRUGS (7)
  1. DEPAKOTE [Suspect]
     Indication: BIPOLAR DISORDER
     Dosage: 250 MG, 3 IN 1 D, PER ORAL
     Route: 048
  2. SERTRALINE HYDROCHLORIDE [Concomitant]
  3. TRILEPPAL [Concomitant]
  4. LIOTHYRONINE SODIUM [Concomitant]
  5. QUETIAPINE FUMARATE [Concomitant]
  6. LORAZEPAM [Concomitant]
  7. ALLEGRA D 24 HOUR [Concomitant]

REACTIONS (1)
  - DEAFNESS [None]
